FAERS Safety Report 10866938 (Version 1)
Quarter: 2015Q1

REPORT INFORMATION
  Report Type: Spontaneous
  Country: US (occurrence: None)
  Receive Date: 20150220
  Receipt Date: 20150220
  Transmission Date: 20150721
  Serious: Yes (Other)
  Sender: FDA-Public Use
  Company Number: None

PATIENT
  Age: 49 Year
  Sex: Female
  Weight: 67.13 kg

DRUGS (2)
  1. DAILY VITAMIN [Concomitant]
     Active Substance: VITAMINS
  2. AUGMENTIN [Suspect]
     Active Substance: AMOXICILLIN\CLAVULANATE POTASSIUM
     Indication: SINUSITIS
     Dosage: 1 PILL, TWICE DAILY, TAKEN BY MOUTH
     Route: 048
     Dates: start: 20150107, end: 20150116

REACTIONS (15)
  - Respiratory tract congestion [None]
  - Dysphagia [None]
  - Dysphonia [None]
  - Impaired work ability [None]
  - Fear [None]
  - Disturbance in attention [None]
  - Dyspnoea [None]
  - Hyperhidrosis [None]
  - Fear of death [None]
  - Flushing [None]
  - Hypoaesthesia [None]
  - Depression [None]
  - Pain in extremity [None]
  - Paraesthesia [None]
  - Panic attack [None]

NARRATIVE: CASE EVENT DATE: 20150219
